FAERS Safety Report 8928926 (Version 1)
Quarter: 2012Q4

REPORT INFORMATION
  Report Type: Report from Study
  Country: US (occurrence: US)
  Receive Date: 20121127
  Receipt Date: 20121127
  Transmission Date: 20130627
  Serious: Yes (Hospitalization)
  Sender: FDA-Public Use
  Company Number: US-009507513-1211USA009013

PATIENT
  Age: 76 Year
  Sex: Male
  Weight: 88 kg

DRUGS (21)
  1. TEMOZOLOMIDE [Suspect]
     Indication: GLIOBLASTOMA MULTIFORME
     Dosage: 220 mg/m2, qd
     Route: 048
     Dates: start: 20090127, end: 20090930
  2. BEVACIZUMAB [Suspect]
     Indication: GLIOBLASTOMA MULTIFORME
     Dosage: 10 mg/Kg, UNK
     Route: 042
     Dates: start: 20090206, end: 20091013
  3. ERLOTINIB HYDROCHLORIDE [Suspect]
     Indication: GLIOBLASTOMA MULTIFORME
     Dosage: 150 mg, qd
     Route: 048
     Dates: start: 20090126, end: 20091024
  4. SINGULAIR [Concomitant]
     Dosage: UNK
     Dates: start: 2001
  5. QVAR [Concomitant]
     Dosage: UNK
     Dates: start: 2001
  6. ADVAIR [Concomitant]
     Dosage: UNK
     Dates: start: 2001
  7. DUONEB [Concomitant]
     Dosage: UNK
     Dates: start: 2001
  8. ZOFRAN [Concomitant]
     Dosage: UNK
     Dates: start: 20090127
  9. ATIVAN [Concomitant]
     Dosage: UNK
     Dates: start: 20090220
  10. PROTONIX [Concomitant]
     Dosage: UNK
     Dates: start: 20090217
  11. CITRUCEL (METHYLCELLULOSE) [Concomitant]
     Dosage: UNK
     Dates: start: 20090312
  12. VIAGRA [Concomitant]
     Dosage: UNK
     Dates: start: 2004
  13. METAMUCIL [Concomitant]
     Dosage: UNK
     Dates: start: 20090514
  14. TYLENOL [Concomitant]
     Dosage: UNK
     Dates: start: 20090330
  15. DEPAKOTE [Concomitant]
     Dosage: UNK
     Dates: start: 20090721
  16. HYDROCORTISONE [Concomitant]
     Dosage: UNK
     Dates: start: 20090519
  17. COUMADIN [Concomitant]
     Dosage: UNK
     Dates: start: 20090814
  18. NORVASC [Concomitant]
     Dosage: UNK
     Dates: start: 20090715
  19. EUCERIN CREME [Concomitant]
     Dosage: UNK
     Dates: start: 20090715
  20. PREDNISONE [Concomitant]
     Dosage: UNK
     Dates: start: 20090924
  21. CIPROFLOXACIN [Concomitant]
     Dosage: UNK
     Dates: start: 20091024

REACTIONS (10)
  - Urinary tract infection [Unknown]
  - Dyspnoea [Unknown]
  - Diarrhoea [Unknown]
  - Urinary retention [Unknown]
  - Gastrointestinal haemorrhage [Unknown]
  - Prostatic abscess [Unknown]
  - Retroperitoneal haemorrhage [Unknown]
  - Atrial fibrillation [Unknown]
  - Dyspnoea [Unknown]
  - Tremor [Unknown]
